FAERS Safety Report 8379575-6 (Version None)
Quarter: 2012Q1

REPORT INFORMATION
  Report Type: 
  Country: None (occurrence: None)
  Receive Date: 20120323
  Receipt Date: 20110422
  Transmission Date: 20120608
  Serious: Yes (Hospitalization, Other)
  Sender: FDA-Public Use
  Company Number: 163-21880-11040843

PATIENT
  Age: 92 Year
  Sex: Male
  Weight: 77.11 kg

DRUGS (1)
  1. REVLIMID [Suspect]
     Indication: MULTIPLE MYELOMA
     Dosage: 2.5 MG, 1 IN 2 D, PO
     Route: 048
     Dates: start: 20110326, end: 20110406

REACTIONS (7)
  - HAEMOGLOBIN DECREASED [None]
  - TREMOR [None]
  - ASTHENIA [None]
  - VOMITING [None]
  - DIARRHOEA [None]
  - NAUSEA [None]
  - DECREASED APPETITE [None]
